FAERS Safety Report 5714623-0 (Version None)
Quarter: 2008Q2

REPORT INFORMATION
  Report Type: 
  Country: None (occurrence: None)
  Receive Date: 20080423
  Receipt Date: 20080414
  Transmission Date: 20081010
  Serious: Yes (Other)
  Sender: FDA-Public Use
  Company Number: B0516745A

PATIENT
  Age: 50 Year
  Sex: Female

DRUGS (2)
  1. HYCAMTIN [Suspect]
     Indication: OVARIAN CANCER
     Dosage: 3MGM2 PER DAY
     Route: 042
     Dates: start: 20040825, end: 20050126
  2. PACLITAXEL [Suspect]
     Indication: OVARIAN CANCER
     Dosage: 80MGM2 PER DAY
     Route: 042
     Dates: start: 20040825, end: 20050126

REACTIONS (1)
  - TOXIC SKIN ERUPTION [None]
